FAERS Safety Report 12680553 (Version 1)
Quarter: 2016Q3

REPORT INFORMATION
  Report Type: Spontaneous
  Country: CN (occurrence: CN)
  Receive Date: 20160824
  Receipt Date: 20160824
  Transmission Date: 20161109
  Serious: Yes (Death, Other)
  Sender: FDA-Public Use
  Company Number: CN-BAYER-2016-160271

PATIENT
  Age: 47 Year
  Sex: Male

DRUGS (6)
  1. CLOPIDOGREL [Interacting]
     Active Substance: CLOPIDOGREL BISULFATE
     Dosage: 300 MG
  2. HEPARIN [Interacting]
     Active Substance: HEPARIN SODIUM
  3. TIROFIBAN [Interacting]
     Active Substance: TIROFIBAN
  4. BAYASPIRIN [Suspect]
     Active Substance: ASPIRIN
     Indication: ACUTE MYOCARDIAL INFARCTION
     Dosage: 300 MG ST
     Route: 048
  5. NITROPRUSSIDE SODIUM [Concomitant]
  6. UROKINASE [Interacting]
     Active Substance: UROKINASE

REACTIONS (7)
  - Cardiac failure [Fatal]
  - Respiratory failure [Fatal]
  - Coma [None]
  - Labelled drug-drug interaction medication error [Fatal]
  - Drug administration error [Fatal]
  - Brain stem haemorrhage [Fatal]
  - Coronary no-reflow phenomenon [Fatal]

NARRATIVE: CASE EVENT DATE: 20151022
